FAERS Safety Report 10207203 (Version 1)
Quarter: 2014Q2

REPORT INFORMATION
  Report Type: Spontaneous
  Country: US (occurrence: None)
  Receive Date: 20140529
  Receipt Date: 20140529
  Transmission Date: 20141212
  Serious: Yes (Congenital Anomaly)
  Sender: FDA-Public Use
  Company Number: None

PATIENT
  Age: 20 Week
  Sex: Female
  Weight: 9.53 kg

DRUGS (1)
  1. FLUOXETINE [Suspect]
     Dosage: 3 PILLS ONCE DAILY TAKEN BY MOUTH
     Route: 048

REACTIONS (5)
  - Heart disease congenital [None]
  - Annular pancreas [None]
  - Cataract congenital [None]
  - Double outlet right ventricle [None]
  - Maternal drugs affecting foetus [None]
